FAERS Safety Report 9052652 (Version 1)
Quarter: 2013Q1

REPORT INFORMATION
  Report Type: Spontaneous
  Country: FR (occurrence: FR)
  Receive Date: 20130207
  Receipt Date: 20130207
  Transmission Date: 20140127
  Serious: Yes (Other)
  Sender: FDA-Public Use
  Company Number: FR-MERCK-1302FRA000981

PATIENT
  Sex: Male

DRUGS (3)
  1. CHIBRO-PROSCAR [Suspect]
     Indication: ALOPECIA
     Dosage: 0.25 DF, QD
     Route: 048
     Dates: start: 20110117, end: 20120313
  2. PROPECIA [Suspect]
     Dosage: UNK
     Route: 048
  3. MINOXIDIL [Suspect]
     Dosage: UNK
     Route: 061
     Dates: start: 20110117

REACTIONS (7)
  - Fatigue [Recovering/Resolving]
  - Erectile dysfunction [Not Recovered/Not Resolved]
  - Loss of libido [Not Recovered/Not Resolved]
  - Off label use [Unknown]
  - Fatigue [Unknown]
  - Erectile dysfunction [Unknown]
  - Loss of libido [Unknown]
